FAERS Safety Report 24587087 (Version 1)
Quarter: 2024Q4

REPORT INFORMATION
  Report Type: Spontaneous
  Country: US (occurrence: None)
  Receive Date: 20241107
  Receipt Date: 20241107
  Transmission Date: 20250114
  Serious: No
  Sender: UNICHEM
  Company Number: US-ARIS GLOBAL-UCM202310-001359

PATIENT
  Sex: Female

DRUGS (1)
  1. LAMOTRIGINE [Suspect]
     Active Substance: LAMOTRIGINE
     Indication: Product used for unknown indication
     Dosage: UNKNOWN

REACTIONS (2)
  - Dyskinesia [Unknown]
  - Anxiety [Unknown]
